FAERS Safety Report 10832131 (Version 4)
Quarter: 2015Q1

REPORT INFORMATION
  Report Type: Spontaneous
  Country: US (occurrence: US)
  Receive Date: 20150219
  Receipt Date: 20150219
  Transmission Date: 20150721
  Serious: Yes (Other)
  Sender: FDA-Public Use
  Company Number: US-ACTAVIS-2015-03124

PATIENT
  Sex: Male
  Weight: 82 kg

DRUGS (16)
  1. ISOSORBIDE MONONITRATE (AELLC) (ISOSORBIDE MONONITRATE) TABLET, 10MG [Suspect]
     Active Substance: ISOSORBIDE MONONITRATE
     Indication: PRODUCT USED FOR UNKNOWN INDICATION
     Dosage: UNK
     Route: 065
     Dates: start: 201408, end: 201408
  2. TYVASO [Suspect]
     Active Substance: TREPROSTINIL
     Indication: PULMONARY HYPERTENSION
     Dosage: 18-54 UG, QID
     Route: 055
     Dates: start: 20140717
  3. TYVASO [Suspect]
     Active Substance: TREPROSTINIL
     Dosage: 7 UNK, UNKNOWN
     Route: 055
     Dates: start: 20140901, end: 20140903
  4. TYVASO [Suspect]
     Active Substance: TREPROSTINIL
     Dosage: 3 UNK, UNKNOWN
     Route: 055
     Dates: start: 20140904
  5. TYVASO [Suspect]
     Active Substance: TREPROSTINIL
     Dosage: 18-54 UG, QID
     Route: 055
     Dates: start: 20140815, end: 20141121
  6. DOXAZOSIN [Suspect]
     Active Substance: DOXAZOSIN\DOXAZOSIN MESYLATE
     Indication: BENIGN PROSTATIC HYPERPLASIA
     Dosage: 2 MG, DAILY
     Route: 065
     Dates: start: 20140820
  7. TYVASO [Suspect]
     Active Substance: TREPROSTINIL
     Indication: PULMONARY ARTERIAL HYPERTENSION
     Dosage: 18-54 UG, QID
     Route: 055
     Dates: start: 20140717
  8. TYVASO [Suspect]
     Active Substance: TREPROSTINIL
     Dosage: 18-54 UG, QID
     Route: 055
     Dates: start: 20140718
  9. TYVASO [Suspect]
     Active Substance: TREPROSTINIL
     Dosage: 7 UNK, UNKNOWN
     Route: 055
     Dates: end: 201408
  10. DOXAZOSIN [Suspect]
     Active Substance: DOXAZOSIN\DOXAZOSIN MESYLATE
     Dosage: UNK UNK, DAILY
     Route: 065
     Dates: end: 201408
  11. LETAIRIS [Suspect]
     Active Substance: AMBRISENTAN
     Dosage: 10 MG, DAILY
     Dates: start: 20130524
  12. ADCIRCA [Concomitant]
     Active Substance: TADALAFIL
     Indication: PRODUCT USED FOR UNKNOWN INDICATION
     Route: 065
  13. TYVASO [Suspect]
     Active Substance: TREPROSTINIL
     Dosage: 18-54 UG, QID
     Route: 055
     Dates: start: 20140718
  14. TYVASO [Suspect]
     Active Substance: TREPROSTINIL
     Dosage: 9 UNK, UNKNOWN
     Route: 055
     Dates: start: 201408, end: 20140831
  15. LETAIRIS [Suspect]
     Active Substance: AMBRISENTAN
     Indication: PULMONARY HYPERTENSION
     Dosage: 10 MG, DAILY
     Route: 065
     Dates: start: 20130524
  16. LASIX [Suspect]
     Active Substance: FUROSEMIDE
     Indication: PRODUCT USED FOR UNKNOWN INDICATION
     Dosage: UNK
     Route: 065
     Dates: start: 20140717, end: 201408

REACTIONS (5)
  - Feeling abnormal [Recovered/Resolved]
  - Hypotension [Recovered/Resolved]
  - Presyncope [Unknown]
  - Dizziness [Not Recovered/Not Resolved]
  - Blood pressure systolic decreased [None]
